FAERS Safety Report 6505962-4 (Version None)
Quarter: 2009Q4

REPORT INFORMATION
  Report Type: 
  Country: None (occurrence: None)
  Receive Date: 20091217
  Receipt Date: 20091217
  Transmission Date: 20100525
  Serious: No
  Sender: FDA-Public Use
  Company Number: None

PATIENT
  Sex: Female
  Weight: 79.3795 kg

DRUGS (1)
  1. PROGRAF [Suspect]
     Dosage: 3MG. 2 X DAILY
     Dates: start: 20060101

REACTIONS (2)
  - BREAST ENLARGEMENT [None]
  - MAMMOGRAM ABNORMAL [None]
